FAERS Safety Report 9782718 (Version 1)
Quarter: 2013Q4

REPORT INFORMATION
  Report Type: Spontaneous
  Country: US (occurrence: US)
  Receive Date: 20131226
  Receipt Date: 20131226
  Transmission Date: 20140711
  Serious: Yes (Other)
  Sender: FDA-Public Use
  Company Number: US-SA-2013SA134356

PATIENT
  Age: 49 Year
  Sex: Female

DRUGS (1)
  1. FABRAZYME [Suspect]
     Indication: FABRY^S DISEASE
     Route: 042
     Dates: start: 200509

REACTIONS (2)
  - Renal disorder [Not Recovered/Not Resolved]
  - Unevaluable event [Not Recovered/Not Resolved]
